FAERS Safety Report 12375392 (Version 1)
Quarter: 2016Q2

REPORT INFORMATION
  Report Type: Spontaneous
  Country: US (occurrence: None)
  Receive Date: 20160516
  Receipt Date: 20160516
  Transmission Date: 20160815
  Serious: No
  Sender: FDA-Public Use
  Company Number: None

PATIENT
  Sex: Male

DRUGS (1)
  1. STELARA [Suspect]
     Active Substance: USTEKINUMAB
     Indication: PSORIATIC ARTHROPATHY
     Dosage: 90MG ONE TIME
     Route: 058
     Dates: start: 20160428

REACTIONS (6)
  - Peripheral swelling [None]
  - Infection [None]
  - Impaired healing [None]
  - Pain [None]
  - Arthritis [None]
  - Laceration [None]
